FAERS Safety Report 9337218 (Version 1)
Quarter: 2013Q2

REPORT INFORMATION
  Report Type: Spontaneous
  Country: US (occurrence: US)
  Receive Date: 20130607
  Receipt Date: 20130607
  Transmission Date: 20140414
  Serious: Yes (Hospitalization, Other)
  Sender: FDA-Public Use
  Company Number: US-UCBSA-088165

PATIENT
  Sex: Female

DRUGS (2)
  1. KEPPRA [Suspect]
  2. DECADRON [Suspect]

REACTIONS (5)
  - Surgery [Unknown]
  - Rash [Unknown]
  - Headache [Unknown]
  - Pain [Unknown]
  - Asthenia [Unknown]
